FAERS Safety Report 10668349 (Version 1)
Quarter: 2014Q4

REPORT INFORMATION
  Report Type: Spontaneous
  Country: US (occurrence: None)
  Receive Date: 20141217
  Receipt Date: 20141217
  Transmission Date: 20150529
  Serious: No
  Sender: FDA-Public Use
  Company Number: 2014CT000151

PATIENT
  Age: 52 Year
  Sex: Female
  Weight: 97.52 kg

DRUGS (1)
  1. KORLYM [Suspect]
     Active Substance: MIFEPRISTONE
     Indication: CUSHING^S SYNDROME
     Route: 048
     Dates: start: 20140827

REACTIONS (4)
  - Pain [None]
  - Pain in extremity [None]
  - Growing pains [None]
  - Upper extremity mass [None]

NARRATIVE: CASE EVENT DATE: 20140917
